FAERS Safety Report 9681162 (Version 1)
Quarter: 2013Q4

REPORT INFORMATION
  Report Type: Spontaneous
  Country: US (occurrence: US)
  Receive Date: 20131111
  Receipt Date: 20131111
  Transmission Date: 20140711
  Serious: No
  Sender: FDA-Public Use
  Company Number: US-ENDO PHARMACEUTICALS INC.-PROF20120006

PATIENT
  Age: 61 Year
  Sex: Female

DRUGS (1)
  1. PROPAFENONE HYDROCHLORIDE TABLETS 225MG [Suspect]
     Indication: PRODUCT USED FOR UNKNOWN INDICATION
     Dates: start: 20120716, end: 2012

REACTIONS (2)
  - Palpitations [Recovered/Resolved]
  - Drug effect decreased [Recovered/Resolved]
